FAERS Safety Report 9508740 (Version 1)
Quarter: 2013Q1

REPORT INFORMATION
  Report Type: Spontaneous
  Country: US (occurrence: None)
  Receive Date: 20130305
  Receipt Date: 20130305
  Transmission Date: 20140127
  Serious: Yes (Other)
  Sender: FDA-Public Use
  Company Number: 163-21880-12090822

PATIENT
  Age: 83 Year
  Sex: Female

DRUGS (5)
  1. REVLIMID [Suspect]
     Indication: 5Q MINUS SYNDROME
     Dosage: 5 MG, 21 IN 28 D, PO
     Route: 048
     Dates: start: 20130111
  2. EYE DROPS (TETRYZOLINE HYDROCHLORIDE) [Concomitant]
  3. CIPRO (CIPROFLOXACIN) [Concomitant]
  4. FEXOFENADINE [Concomitant]
  5. LISINOPRIL [Concomitant]

REACTIONS (10)
  - Cataract [None]
  - Vasodilatation [None]
  - Weight decreased [None]
  - Diarrhoea [None]
  - Decreased appetite [None]
  - Dysgeusia [None]
  - Hyperhidrosis [None]
  - Pruritus [None]
  - Fatigue [None]
  - Rash [None]
